FAERS Safety Report 21308620 (Version 1)
Quarter: 2022Q3

REPORT INFORMATION
  Report Type: Spontaneous
  Country: US (occurrence: US)
  Receive Date: 20220908
  Receipt Date: 20220908
  Transmission Date: 20221027
  Serious: No
  Sender: FDA-Public Use
  Company Number: US-Emergent Biosolutions-22000180

PATIENT
  Age: 84 Year
  Sex: Male
  Weight: 63.946 kg

DRUGS (3)
  1. NALOXONE HYDROCHLORIDE [Suspect]
     Active Substance: NALOXONE HYDROCHLORIDE
     Indication: Overdose
     Dosage: 4 MILLIGRAM, 2 SINGLE DOSES
     Route: 045
     Dates: start: 20220820, end: 20220820
  2. HYDROCODONE [Suspect]
     Active Substance: HYDROCODONE
     Indication: Pain
     Dosage: 10 MILLIGRAM
     Route: 065
  3. ACETAMINOPHEN [Concomitant]
     Active Substance: ACETAMINOPHEN
     Dosage: 5 MILLIGRAM
     Route: 065

REACTIONS (11)
  - Fatigue [Not Recovered/Not Resolved]
  - Feeling abnormal [Not Recovered/Not Resolved]
  - Musculoskeletal discomfort [Not Recovered/Not Resolved]
  - Limb discomfort [Recovering/Resolving]
  - Somnolence [Not Recovered/Not Resolved]
  - Feeling drunk [Recovering/Resolving]
  - Chest injury [Recovering/Resolving]
  - Musculoskeletal chest pain [Recovering/Resolving]
  - Balance disorder [Not Recovered/Not Resolved]
  - Memory impairment [Recovering/Resolving]
  - Dizziness [Recovering/Resolving]

NARRATIVE: CASE EVENT DATE: 20220820
